FAERS Safety Report 13741348 (Version 1)
Quarter: 2017Q3

REPORT INFORMATION
  Report Type: Spontaneous
  Country: US (occurrence: US)
  Receive Date: 20170711
  Receipt Date: 20170711
  Transmission Date: 20171127
  Serious: Yes (Other)
  Sender: FDA-Public Use
  Company Number: None

PATIENT
  Age: 61 Year
  Sex: Female
  Weight: 78.75 kg

DRUGS (1)
  1. OXYBUTYNIN CL ER 10MG TABLETS, SUBSITUTED FOR DITROPAN XL 10MG [Suspect]
     Active Substance: OXYBUTYNIN CHLORIDE
     Route: 048

REACTIONS (5)
  - Swollen tongue [None]
  - Nasopharyngitis [None]
  - Dry mouth [None]
  - Condition aggravated [None]
  - Plicated tongue [None]

NARRATIVE: CASE EVENT DATE: 20170210
